FAERS Safety Report 25074891 (Version 3)
Quarter: 2025Q4

REPORT INFORMATION
  Report Type: Report from Study
  Country: US (occurrence: US)
  Receive Date: 20250313
  Receipt Date: 20251010
  Transmission Date: 20260118
  Serious: Yes (Other)
  Sender: EMD SERONO INC
  Company Number: US-Merck Healthcare KGaA-2025002687

PATIENT
  Age: 76 Year
  Sex: Female

DRUGS (1)
  1. MAVENCLAD [Suspect]
     Active Substance: CLADRIBINE
     Indication: Multiple sclerosis
     Dosage: YEAR ONE MONTH ONE THERAPY
     Dates: start: 20241230, end: 20250103

REACTIONS (5)
  - Pneumonia [Recovering/Resolving]
  - Sinusitis [Not Recovered/Not Resolved]
  - Influenza [Unknown]
  - Infection [Unknown]
  - Joint swelling [Unknown]

NARRATIVE: CASE EVENT DATE: 20250303
